FAERS Safety Report 8484542-8 (Version None)
Quarter: 2012Q3

REPORT INFORMATION
  Report Type: 
  Country: None (occurrence: None)
  Receive Date: 20120703
  Receipt Date: 20120628
  Transmission Date: 20120928
  Serious: Yes (Death)
  Sender: FDA-Public Use
  Company Number: US-SANOFI-AVENTIS-2012SA035156

PATIENT
  Age: 50 Year
  Sex: Female

DRUGS (2)
  1. AMBIEN [Suspect]
  2. PERCOCET [Concomitant]

REACTIONS (1)
  - DEATH [None]
